FAERS Safety Report 7352742-6 (Version None)
Quarter: 2011Q1

REPORT INFORMATION
  Report Type: 
  Country: None (occurrence: None)
  Receive Date: 20110310
  Receipt Date: 20110310
  Transmission Date: 20110831
  Serious: No
  Sender: FDA-Public Use
  Company Number: None

PATIENT
  Age: 56 Year
  Sex: Female
  Weight: 81.1939 kg

DRUGS (2)
  1. ZITHROMAX [Suspect]
     Indication: NASOPHARYNGITIS
     Dosage: PO
     Route: 048
  2. TAMIFLU [Suspect]
     Indication: NASOPHARYNGITIS
     Dosage: PO
     Route: 048

REACTIONS (2)
  - ANOSMIA [None]
  - AGEUSIA [None]
